FAERS Safety Report 19466669 (Version 2)
Quarter: 2021Q4

REPORT INFORMATION
  Report Type: Spontaneous
  Country: US (occurrence: US)
  Receive Date: 20210628
  Receipt Date: 20211006
  Transmission Date: 20220303
  Serious: No
  Sender: FDA-Public Use
  Company Number: US-AMGEN-USASP2021096704

PATIENT
  Sex: Female

DRUGS (4)
  1. REPATHA [Suspect]
     Active Substance: EVOLOCUMAB
     Indication: Hypercholesterolaemia
     Dosage: 140 MILLIGRAM, Q2WK
     Route: 065
     Dates: start: 202105
  2. REPATHA [Suspect]
     Active Substance: EVOLOCUMAB
     Indication: Blood cholesterol abnormal
     Dosage: UNK, Q2WK
     Route: 065
  3. MEVACOR [Concomitant]
     Active Substance: LOVASTATIN
     Indication: Product used for unknown indication
     Route: 065
  4. ZOCOR [Concomitant]
     Active Substance: SIMVASTATIN
     Indication: Product used for unknown indication
     Route: 065

REACTIONS (9)
  - Oedema [Recovering/Resolving]
  - Peripheral swelling [Unknown]
  - Blood pressure abnormal [Unknown]
  - Weight increased [Unknown]
  - Product dose omission issue [Unknown]
  - Injection site discomfort [Unknown]
  - Incorrect route of product administration [Unknown]
  - Myalgia [Recovering/Resolving]
  - Injection site pain [Recovered/Resolved]

NARRATIVE: CASE EVENT DATE: 20210101
